FAERS Safety Report 8478487 (Version 5)
Quarter: 2012Q4

REPORT INFORMATION
  Report Type: 
  Country: GB (occurrence: GB)
  Receive Date: 20120327
  Receipt Date: 20120906
  Transmission Date: 20130627
  Serious: Yes (Other)
  Sender: FDA-Public Use
  Company Number: GB-GLAXOSMITHKLINE-B0790996A

PATIENT
  Age: 58 None
  Sex: Male

DRUGS (14)
  1. AVANDIA [Suspect]
     Indication: TYPE 2 DIABETES MELLITUS
     Dosage: 4MG Per day
     Route: 065
     Dates: start: 20060525, end: 2010
  2. LISINOPRIL [Concomitant]
  3. BENDROFLUMETHIAZIDE [Concomitant]
  4. LANSOPRAZOLE [Concomitant]
  5. IBUPROFEN [Concomitant]
  6. SALBUTAMOL [Concomitant]
  7. METFORMIN [Concomitant]
  8. SIMVASTATIN [Concomitant]
  9. ADIPINE [Concomitant]
  10. CODEINE [Concomitant]
  11. DESLORATADINE [Concomitant]
  12. TRAMADOL [Concomitant]
  13. LOPERAMIDE [Concomitant]
  14. LORATADINE [Concomitant]

REACTIONS (18)
  - Angina pectoris [Unknown]
  - Chest pain [Unknown]
  - Coronary artery stenosis [Unknown]
  - Radius fracture [Unknown]
  - Disability [Unknown]
  - Malaise [Unknown]
  - Stress [Unknown]
  - Depression [Unknown]
  - Arthralgia [Unknown]
  - Ischaemia [Unknown]
  - Anxiety [Unknown]
  - Crying [Unknown]
  - Musculoskeletal pain [Unknown]
  - Meniscus injury [Unknown]
  - Synovial cyst [Unknown]
  - Joint swelling [Unknown]
  - Joint lock [Unknown]
  - Joint injury [Unknown]
